FAERS Safety Report 4626098-3 (Version None)
Quarter: 2005Q2

REPORT INFORMATION
  Report Type: 
  Country: None (occurrence: None)
  Receive Date: 20050404
  Receipt Date: 20030910
  Transmission Date: 20051028
  Serious: Yes (Hospitalization)
  Sender: FDA-Public Use
  Company Number: GB-BRISTOL-MYERS SQUIBB COMPANY-12378410

PATIENT
  Age: 70 Year

DRUGS (12)
  1. TAXOL [Suspect]
     Indication: BREAST CANCER
     Dates: start: 20030717
  2. HERCEPTIN [Suspect]
     Indication: BREAST CANCER
     Dates: start: 20030716
  3. ADALAT [Concomitant]
  4. ATENOLOL [Concomitant]
  5. BUMETANIDE [Concomitant]
  6. QUININE SULFATE [Concomitant]
  7. TEMAZEPAM [Concomitant]
  8. DICLOFENAC [Concomitant]
  9. CYCLIZINE [Concomitant]
  10. METOCLOPRAMIDE [Concomitant]
  11. LANSOPRAZOLE [Concomitant]
  12. FENTANYL [Concomitant]

REACTIONS (3)
  - DYSPNOEA [None]
  - LEFT VENTRICULAR FAILURE [None]
  - PULMONARY OEDEMA [None]
